FAERS Safety Report 5458636-5 (Version None)
Quarter: 2007Q3

REPORT INFORMATION
  Report Type: 
  Country: None (occurrence: None)
  Receive Date: 20070919
  Receipt Date: 20070416
  Transmission Date: 20080115
  Serious: Yes (Hospitalization)
  Sender: FDA-Public Use
  Company Number: US-ASTRAZENECA-2007UW07367

PATIENT
  Age: 93 Year
  Sex: Female

DRUGS (6)
  1. SEROQUEL [Suspect]
     Indication: DEMENTIA
     Route: 048
     Dates: start: 20060301, end: 20070409
  2. SEROQUEL [Suspect]
     Indication: DEPRESSION
     Route: 048
     Dates: start: 20060301, end: 20070409
  3. SEROQUEL [Suspect]
     Indication: PSYCHOTIC DISORDER
     Route: 048
     Dates: start: 20060301, end: 20070409
  4. TRAZODONE HCL [Concomitant]
  5. TRAMIDAL [Concomitant]
  6. CELEXA [Concomitant]

REACTIONS (2)
  - MENTAL STATUS CHANGES [None]
  - TREMOR [None]
